FAERS Safety Report 23599649 (Version 1)
Quarter: 2024Q1

REPORT INFORMATION
  Report Type: Spontaneous
  Country: GB (occurrence: GB)
  Receive Date: 20240306
  Receipt Date: 20240306
  Transmission Date: 20240409
  Serious: Yes (Death, Other)
  Sender: FDA-Public Use
  Company Number: GB-JUBILANT CADISTA PHARMACEUTICALS-2024GB000272

PATIENT
  Age: 59 Year
  Sex: Female

DRUGS (6)
  1. PREGABALIN [Suspect]
     Active Substance: PREGABALIN
     Indication: Product used for unknown indication
     Dosage: 2 DAYS
     Dates: start: 2014
  2. QUETIAPINE FUMARATE [Suspect]
     Active Substance: QUETIAPINE FUMARATE
     Indication: Depression
     Dosage: UNK, UNK
  3. OXYCODONE HYDROCHLORIDE [Suspect]
     Active Substance: OXYCODONE HYDROCHLORIDE
     Indication: Fibromyalgia
     Dosage: 1-2 TABLETS, 4 DAYS
  4. VENLAFAXINE [Suspect]
     Active Substance: VENLAFAXINE HYDROCHLORIDE
     Indication: Depression
     Dosage: UNK, UNK
  5. OXYCODONE HYDROCHLORIDE [Suspect]
     Active Substance: OXYCODONE HYDROCHLORIDE
     Indication: Fibromyalgia
     Dosage: UNK, UNK
  6. MORPHINE [Suspect]
     Active Substance: MORPHINE
     Indication: Fibromyalgia
     Dosage: UNK, UNK

REACTIONS (4)
  - Toxicity to various agents [Fatal]
  - Pneumonia [Fatal]
  - Arteriosclerosis coronary artery [Fatal]
  - Hepatic steatosis [Fatal]
